FAERS Safety Report 14924689 (Version 5)
Quarter: 2018Q3

REPORT INFORMATION
  Report Type: Report from Study
  Country: ES (occurrence: ES)
  Receive Date: 20180522
  Receipt Date: 20180706
  Transmission Date: 20181010
  Serious: Yes (Hospitalization)
  Sender: FDA-Public Use
  Company Number: ES-EISAI MEDICAL RESEARCH-EC-2018-040034

PATIENT
  Age: 58 Year
  Sex: Male
  Weight: 68.2 kg

DRUGS (6)
  1. EVEROLIMUS. [Suspect]
     Active Substance: EVEROLIMUS
     Indication: RENAL CANCER
     Route: 048
     Dates: start: 20180104, end: 20180518
  2. LENVATINIB [Suspect]
     Active Substance: LENVATINIB
     Route: 048
     Dates: start: 20180327, end: 20180518
  3. EVEROLIMUS. [Suspect]
     Active Substance: EVEROLIMUS
     Route: 048
     Dates: start: 201806
  4. LENVATINIB [Suspect]
     Active Substance: LENVATINIB
     Dosage: DOSAGE UNKNOWN
     Route: 048
     Dates: start: 201806
  5. LENVATINIB [Suspect]
     Active Substance: LENVATINIB
     Indication: RENAL CANCER
     Route: 048
     Dates: start: 20180104, end: 20180219
  6. LENVATINIB [Suspect]
     Active Substance: LENVATINIB
     Route: 048
     Dates: start: 20180220, end: 20180326

REACTIONS (6)
  - Amylase increased [Recovered/Resolved]
  - Fractured sacrum [Recovered/Resolved]
  - Oedema peripheral [Recovered/Resolved]
  - Lipase increased [Recovered/Resolved]
  - Spinal cord compression [Recovered/Resolved]
  - Drug dispensing error [Not Recovered/Not Resolved]

NARRATIVE: CASE EVENT DATE: 20180327
